FAERS Safety Report 23859044 (Version 1)
Quarter: 2024Q2

REPORT INFORMATION
  Report Type: Spontaneous
  Country: US (occurrence: None)
  Receive Date: 20240515
  Receipt Date: 20240515
  Transmission Date: 20240716
  Serious: Yes (Hospitalization)
  Sender: FDA-Public Use
  Company Number: None

PATIENT
  Age: 62 Year
  Sex: Female

DRUGS (2)
  1. AMBRISENTAN [Suspect]
     Active Substance: AMBRISENTAN
     Indication: Pulmonary hypertension
     Dosage: FREQUENCY : DAILY;?
     Route: 048
     Dates: start: 20240417
  2. SILDENAFIL [Suspect]
     Active Substance: SILDENAFIL

REACTIONS (2)
  - Pneumonia bacterial [None]
  - Haemophilus test positive [None]

NARRATIVE: CASE EVENT DATE: 20240421
